FAERS Safety Report 6632148-5 (Version None)
Quarter: 2010Q1

REPORT INFORMATION
  Report Type: 
  Country: None (occurrence: None)
  Receive Date: 20100310
  Receipt Date: 20100302
  Transmission Date: 20100710
  Serious: Yes (Other)
  Sender: FDA-Public Use
  Company Number: 20107901

PATIENT
  Sex: Female

DRUGS (1)
  1. LIORESAL [Suspect]
     Indication: MUSCLE SPASTICITY
     Dosage: 50 MCG, DAILY; INTRATHECAL
     Route: 037

REACTIONS (6)
  - DERMATITIS ALLERGIC [None]
  - HAEMATOMA [None]
  - MEDICAL DEVICE COMPLICATION [None]
  - OEDEMA [None]
  - PRURITUS [None]
  - SEROMA [None]
